FAERS Safety Report 4467903-3 (Version None)
Quarter: 2004Q4

REPORT INFORMATION
  Report Type: 
  Country: None (occurrence: None)
  Receive Date: 20041004
  Receipt Date: 20040920
  Transmission Date: 20050328
  Serious: Yes (Other)
  Sender: FDA-Public Use
  Company Number: 209331

PATIENT
  Age: 61 Year
  Sex: Female
  Weight: 78 kg

DRUGS (1)
  1. HERCEPTIN [Suspect]
     Indication: BREAST CANCER
     Dosage: 21 MG/ML, INTRAVENOUS
     Route: 042
     Dates: start: 20030222

REACTIONS (1)
  - MASTITIS [None]
